FAERS Safety Report 6467061-X (Version None)
Quarter: 2009Q4

REPORT INFORMATION
  Report Type: 
  Country: None (occurrence: None)
  Receive Date: 20091127
  Receipt Date: 20091117
  Transmission Date: 20100525
  Serious: Yes (Hospitalization)
  Sender: FDA-Public Use
  Company Number: ADR51362009

PATIENT
  Age: 42 Year
  Sex: Female

DRUGS (6)
  1. METFORMIN HCL [Suspect]
  2. TEMAZEPAM [Concomitant]
  3. ACETAMINOPHEN WITH PROPOXYPHENE HCL TAB [Concomitant]
  4. DICLOFENAC [Concomitant]
  5. NORTRIPTYLINE [Concomitant]
  6. RIZATRIPTAN BENZOATE [Concomitant]

REACTIONS (16)
  - ABDOMINAL PAIN [None]
  - COLON CANCER [None]
  - DIARRHOEA [None]
  - DUODENAL ULCER [None]
  - GASTRITIS [None]
  - HAEMATEMESIS [None]
  - HAEMOGLOBIN DECREASED [None]
  - HEPATIC STEATOSIS [None]
  - LARGE INTESTINAL ULCER [None]
  - OESOPHAGITIS ULCERATIVE [None]
  - PALLOR [None]
  - PLATELET COUNT INCREASED [None]
  - PYREXIA [None]
  - REFLUX OESOPHAGITIS [None]
  - VOMITING [None]
  - WEIGHT DECREASED [None]
